FAERS Safety Report 12933868 (Version 6)
Quarter: 2017Q2

REPORT INFORMATION
  Report Type: Report from Study
  Country: US (occurrence: US)
  Receive Date: 20161111
  Receipt Date: 20170602
  Transmission Date: 20170830
  Serious: Yes (Other)
  Sender: FDA-Public Use
  Company Number: US-JNJFOC-20161004864

PATIENT
  Age: 76 Year
  Sex: Male

DRUGS (6)
  1. IMBRUVICA [Suspect]
     Active Substance: IBRUTINIB
     Indication: MANTLE CELL LYMPHOMA
     Route: 048
     Dates: start: 20160922
  2. LASIX [Concomitant]
     Active Substance: FUROSEMIDE
  3. VITAMIN D [Concomitant]
     Active Substance: CHOLECALCIFEROL
  4. LEVOTHYROXINE. [Concomitant]
     Active Substance: LEVOTHYROXINE
  5. SPIRONOLACTONE. [Concomitant]
     Active Substance: SPIRONOLACTONE
  6. IMBRUVICA [Suspect]
     Active Substance: IBRUTINIB
     Indication: MANTLE CELL LYMPHOMA
     Route: 048
     Dates: start: 20160926

REACTIONS (13)
  - Asthenia [Unknown]
  - Rash [Unknown]
  - Eye haemorrhage [Unknown]
  - Haemoglobin decreased [Unknown]
  - Skin irritation [Recovering/Resolving]
  - Cold sweat [Unknown]
  - Fungal skin infection [Unknown]
  - Flatulence [Unknown]
  - Fatigue [Unknown]
  - Dermatitis contact [Recovered/Resolved]
  - Cough [Unknown]
  - Blood pressure increased [Unknown]
  - Nasal disorder [Unknown]

NARRATIVE: CASE EVENT DATE: 20161210
